FAERS Safety Report 4437504-1 (Version None)
Quarter: 2004Q3

REPORT INFORMATION
  Report Type: 
  Country: None (occurrence: None)
  Receive Date: 20040831
  Receipt Date: 20040823
  Transmission Date: 20050211
  Serious: Yes (Hospitalization)
  Sender: FDA-Public Use
  Company Number: US-JNJFOC-20040808010

PATIENT
  Sex: Male
  Weight: 71.22 kg

DRUGS (2)
  1. REMICADE [Suspect]
     Indication: RHEUMATOID ARTHRITIS
  2. METHOTREXATE [Concomitant]
     Dosage: PER WEEK

REACTIONS (4)
  - ASTHENIA [None]
  - GOUT [None]
  - GUILLAIN-BARRE SYNDROME [None]
  - PARAESTHESIA [None]
